FAERS Safety Report 17011083 (Version 2)
Quarter: 2019Q4

REPORT INFORMATION
  Report Type: Spontaneous
  Country: ES (occurrence: ES)
  Receive Date: 20191108
  Receipt Date: 20191114
  Transmission Date: 20200122
  Serious: Yes (Other)
  Sender: FDA-Public Use
  Company Number: ES-PFIZER INC-2019477617

PATIENT

DRUGS (2)
  1. IDARUBICIN HCL [Suspect]
     Active Substance: IDARUBICIN HYDROCHLORIDE
     Dosage: 23 MG, UNK (4 DAYS)
     Route: 064
  2. TETRIONINA (TRETINOIN) [Suspect]
     Active Substance: TRETINOIN
     Dosage: 90 MG, DAILY (DURING 35 DAYS)
     Route: 064

REACTIONS (2)
  - Maternal exposure during pregnancy [Unknown]
  - Low birth weight baby [Unknown]
